FAERS Safety Report 18928274 (Version 1)
Quarter: 2021Q1

REPORT INFORMATION
  Report Type: Spontaneous
  Country: FR (occurrence: FR)
  Receive Date: 20210223
  Receipt Date: 20210223
  Transmission Date: 20210420
  Serious: Yes (Other)
  Sender: FDA-Public Use
  Company Number: FR-PFIZER INC-2021150520

PATIENT
  Age: 75 Year
  Sex: Male
  Weight: 100 kg

DRUGS (4)
  1. LEVOFOLINATE SODIUM MEDAC [Concomitant]
  2. FLUOROURACILE PFIZER [Suspect]
     Active Substance: FLUOROURACIL
     Indication: ADENOCARCINOMA GASTRIC
     Dosage: 2400 MG/M2, CYCLIC: 2 WEEKS
     Route: 042
     Dates: start: 20180205, end: 20181210
  3. CISPLATIN ACCORD HEALTHCARE [Suspect]
     Active Substance: CISPLATIN
     Indication: ADENOCARCINOMA GASTRIC
     Dosage: 40 MG/M2, CYCLIC: 2 WEEKS
     Route: 042
     Dates: start: 20180205, end: 20181210
  4. DOCETAXEL. [Suspect]
     Active Substance: DOCETAXEL
     Indication: ADENOCARCINOMA GASTRIC
     Dosage: 40 MG/M2, CYCLIC: 2 WEEKS
     Route: 042
     Dates: start: 20180205, end: 20181210

REACTIONS (1)
  - Deafness neurosensory [Not Recovered/Not Resolved]

NARRATIVE: CASE EVENT DATE: 20181212
